FAERS Safety Report 7273215-5 (Version None)
Quarter: 2010Q4

REPORT INFORMATION
  Report Type: 
  Country: None (occurrence: None)
  Receive Date: 20101201
  Receipt Date: 20100903
  Transmission Date: 20110411
  Serious: Yes (Other)
  Sender: FDA-Public Use
  Company Number: 308206

PATIENT
  Age: 51 Year
  Sex: Male
  Weight: 86.2 kg

DRUGS (9)
  1. NOVOLOG [Suspect]
     Indication: TYPE 1 DIABETES MELLITUS
     Dosage: SUBCUTAN.-PUMP, SUBCUTAN.-PUMP
     Route: 058
     Dates: start: 20100501, end: 20100501
  2. NOVOLOG [Suspect]
     Indication: TYPE 1 DIABETES MELLITUS
     Dosage: SUBCUTAN.-PUMP, SUBCUTAN.-PUMP
     Route: 058
     Dates: start: 20030101
  3. OMEPRAZOLE /00661202/ (OMEPRAZOLE SODIUM) [Concomitant]
  4. SIMVASTATIN [Concomitant]
  5. MULTIVITAMIN /00097801/ (ASCORBIC ACID, CALCIUM PANTOPHENATE, ERGOCALC [Concomitant]
  6. SYNTHROID [Concomitant]
  7. ERGOCALCIFEROL [Concomitant]
  8. LISINOPRIL /00894002/ (LISINOPRIL DIHYDRATE) [Concomitant]
  9. GABAPENTIN [Concomitant]

REACTIONS (1)
  - BLOOD GLUCOSE INCREASED [None]
